FAERS Safety Report 17585751 (Version 2)
Quarter: 2020Q2

REPORT INFORMATION
  Report Type: Report from Study
  Country: AU (occurrence: AU)
  Receive Date: 20200326
  Receipt Date: 20200512
  Transmission Date: 20200713
  Serious: Yes (Death)
  Sender: FDA-Public Use
  Company Number: AU-TOLMAR, INC.-20AU020723

PATIENT
  Age: 87 Year
  Sex: Male

DRUGS (1)
  1. ELIGARD [Suspect]
     Active Substance: LEUPROLIDE ACETATE
     Indication: PROSTATE CANCER
     Dosage: 22.5 MG, Q 3 MONTH
     Route: 058
     Dates: start: 20191216

REACTIONS (2)
  - Hypoglycaemia [Unknown]
  - Cardiac failure [Fatal]

NARRATIVE: CASE EVENT DATE: 20200425
